FAERS Safety Report 5318085-7 (Version None)
Quarter: 2007Q1

REPORT INFORMATION
  Report Type: 
  Country: None (occurrence: None)
  Receive Date: 20070207
  Receipt Date: 20061110
  Transmission Date: 20070707
  Serious: No
  Sender: FDA-Public Use
  Company Number: SPV1-2006-00731

PATIENT
  Age: 29 Year

DRUGS (1)
  1. FOSRENOL [Suspect]
     Dosage: 750 MG, 3X/DAY:TID
     Dates: start: 20060727, end: 20060831

REACTIONS (1)
  - RASH ERYTHEMATOUS [None]
